FAERS Safety Report 13297198 (Version 1)
Quarter: 2017Q1

REPORT INFORMATION
  Report Type: Spontaneous
  Country: US (occurrence: US)
  Receive Date: 20170303
  Receipt Date: 20170303
  Transmission Date: 20170428
  Serious: Yes (Hospitalization)
  Sender: FDA-Public Use
  Company Number: None

PATIENT
  Age: 74 Year
  Sex: Male

DRUGS (6)
  1. CARBOPLATIN. [Concomitant]
     Active Substance: CARBOPLATIN
  2. NEULASTA [Suspect]
     Active Substance: PEGFILGRASTIM
     Indication: AGRANULOCYTOSIS
     Dosage: DAY2  AFTER CHEMO
     Route: 058
     Dates: start: 20161223
  3. GRANISETRON [Concomitant]
     Active Substance: GRANISETRON
  4. DEXAMETHASONE. [Concomitant]
     Active Substance: DEXAMETHASONE
  5. ETOPOSIDE 20 MG/ML MDV [Suspect]
     Active Substance: ETOPOSIDE
     Indication: ADRENAL GLAND CANCER
     Route: 042
     Dates: start: 20170110
  6. NEULASTA [Suspect]
     Active Substance: PEGFILGRASTIM
     Indication: NEOPLASM MALIGNANT
     Dosage: DAY2  AFTER CHEMO
     Route: 058
     Dates: start: 20161223

REACTIONS (2)
  - Dyspnoea [None]
  - Pain [None]

NARRATIVE: CASE EVENT DATE: 201702
